FAERS Safety Report 5640571-0 (Version None)
Quarter: 2008Q1

REPORT INFORMATION
  Report Type: 
  Country: None (occurrence: None)
  Receive Date: 20080227
  Receipt Date: 20080219
  Transmission Date: 20080703
  Serious: Yes (Other)
  Sender: FDA-Public Use
  Company Number: PHEH2008US02018

PATIENT
  Age: 53 Year
  Sex: Male

DRUGS (3)
  1. ZOMETA [Suspect]
     Indication: PROSTATE CANCER METASTATIC
     Dosage: 4 MG, ONCE/SINGLE
     Route: 042
     Dates: start: 20080125
  2. RADIATION [Concomitant]
  3. GOLD [Concomitant]

REACTIONS (4)
  - CYST [None]
  - MUSCULOSKELETAL STIFFNESS [None]
  - SYNOVIAL CYST [None]
  - TINNITUS [None]
